FAERS Safety Report 11269810 (Version 2)
Quarter: 2015Q3

REPORT INFORMATION
  Report Type: Other
  Country: BE (occurrence: BE)
  Receive Date: 20150714
  Receipt Date: 20150728
  Transmission Date: 20151125
  Serious: Yes (Death)
  Sender: FDA-Public Use
  Company Number: BE-DEXPHARM-20150756

PATIENT
  Age: 55 Year
  Sex: Female

DRUGS (5)
  1. AZATHIOPRINE. [Concomitant]
     Active Substance: AZATHIOPRINE
     Dosage: 25 MG/DAY
     Route: 065
  2. ASPIRIN. [Concomitant]
     Active Substance: ASPIRIN
     Indication: INTERMITTENT CLAUDICATION
     Dosage: LOW DOSE ASPIRIN
     Route: 065
     Dates: start: 2005
  3. TACROLIMUS. [Interacting]
     Active Substance: TACROLIMUS
     Indication: IMMUNOSUPPRESSANT DRUG THERAPY
     Dosage: ~3 MICROGRAM/L
     Route: 065
     Dates: start: 2000
  4. STEROIDS [Interacting]
     Active Substance: UNSPECIFIED INGREDIENT
     Indication: IMMUNOSUPPRESSANT DRUG THERAPY
     Dosage: 4 MG/DAY
     Route: 065
     Dates: start: 2000
  5. DICLOFENAC [Suspect]
     Active Substance: DICLOFENAC
     Indication: ARTHRALGIA
     Route: 065
     Dates: start: 2012

REACTIONS (3)
  - Acute kidney injury [Fatal]
  - Intestinal ulcer [Fatal]
  - Shock [Fatal]

NARRATIVE: CASE EVENT DATE: 2012
